FAERS Safety Report 8766382 (Version 3)
Quarter: 2012Q4

REPORT INFORMATION
  Report Type: 
  Country: US (occurrence: US)
  Receive Date: 20120904
  Receipt Date: 20121231
  Transmission Date: 20130627
  Serious: Yes (Hospitalization)
  Sender: FDA-Public Use
  Company Number: US-AMGEN-USASP2012054785

PATIENT
  Age: 60 Year
  Sex: Male
  Weight: 102.4 kg

DRUGS (1)
  1. ENBREL [Suspect]
     Indication: PSORIASIS
     Dosage: 50 mg, qwk
     Route: 058
     Dates: start: 200609

REACTIONS (4)
  - Joint injury [Recovered/Resolved]
  - Arthralgia [Recovered/Resolved]
  - Joint destruction [Not Recovered/Not Resolved]
  - Cellulitis [Recovered/Resolved]
